FAERS Safety Report 7111206-5 (Version None)
Quarter: 2010Q4

REPORT INFORMATION
  Report Type: 
  Country: None (occurrence: None)
  Receive Date: 20101118
  Receipt Date: 20101110
  Transmission Date: 20110411
  Serious: Yes (Hospitalization)
  Sender: FDA-Public Use
  Company Number: JP-PFIZER INC-2010145447

PATIENT
  Age: 28 Year
  Sex: Female

DRUGS (1)
  1. AZITHROMYCIN [Suspect]

REACTIONS (3)
  - LIVER FUNCTION TEST ABNORMAL [None]
  - ORGANISING PNEUMONIA [None]
  - PNEUMONIA PNEUMOCOCCAL [None]
